FAERS Safety Report 9286717 (Version 1)
Quarter: 2013Q2

REPORT INFORMATION
  Report Type: Report from Study
  Country: DE (occurrence: DE)
  Receive Date: 20130513
  Receipt Date: 20130513
  Transmission Date: 20140414
  Serious: Yes (Death)
  Sender: FDA-Public Use
  Company Number: DE-BAXTER-2013BAX017882

PATIENT
  Sex: 0

DRUGS (5)
  1. ENDOXAN 1G [Suspect]
     Indication: LYMPHOMA
     Dosage: ON DAY 1
  2. RITUXIMAB [Suspect]
     Indication: LYMPHOMA
     Dosage: ON DAY 1
  3. DOXORUBICIN [Suspect]
     Indication: LYMPHOMA
     Dosage: ON DAY 1
  4. VINCRISTINE [Suspect]
     Indication: LYMPHOMA
     Dosage: ON DAY 1
  5. PREDNISONE [Suspect]
     Indication: LYMPHOMA
     Dosage: FOR 5 DAYS

REACTIONS (1)
  - Sepsis [Fatal]
